FAERS Safety Report 5299245-0 (Version None)
Quarter: 2007Q2

REPORT INFORMATION
  Report Type: 
  Country: None (occurrence: None)
  Receive Date: 20070417
  Receipt Date: 20070403
  Transmission Date: 20071010
  Serious: Yes (Other)
  Sender: FDA-Public Use
  Company Number: PHEH2007US04094

PATIENT
  Sex: Female

DRUGS (6)
  1. GLEEVEC [Suspect]
     Indication: GASTROINTESTINAL STROMAL TUMOUR
     Dosage: 400 MG, QD
     Route: 048
     Dates: start: 20070101
  2. ATENOLOL [Concomitant]
     Dosage: 50 MG, UNK
     Route: 048
  3. HYDROCHLOROTHIAZIDE [Concomitant]
     Dosage: 25 MG, UNK
     Route: 048
  4. SKELAXIN [Concomitant]
     Indication: FIBROMYALGIA
     Dosage: 800 MG, 1-3 TIMES/DAY
     Route: 048
  5. ETODOLAC [Concomitant]
     Indication: FIBROMYALGIA
     Dosage: 400 MG, BID
     Route: 048
  6. QUESTRAN [Concomitant]
     Indication: DIARRHOEA
     Dosage: 0.5 DF, QD
     Route: 048

REACTIONS (5)
  - ARTHRALGIA [None]
  - CHEST PAIN [None]
  - ELECTROCARDIOGRAM ABNORMAL [None]
  - MYOCARDIAL INFARCTION [None]
  - PAIN IN EXTREMITY [None]
